FAERS Safety Report 9562265 (Version 2)
Quarter: 2013Q4

REPORT INFORMATION
  Report Type: Spontaneous
  Country: AT (occurrence: AT)
  Receive Date: 20130927
  Receipt Date: 20131016
  Transmission Date: 20140711
  Serious: Yes (Other)
  Sender: FDA-Public Use
  Company Number: AT-009507513-1309AUT009299

PATIENT
  Age: 59 Year
  Sex: Female

DRUGS (3)
  1. VICTRELIS [Suspect]
     Indication: HEPATITIS C
     Dosage: UNK
     Dates: start: 20110517
  2. REBETOL [Suspect]
     Indication: HEPATITIS C
  3. INTERFERON (UNSPECIFIED) [Suspect]
     Indication: HEPATITIS C

REACTIONS (4)
  - Anaemia [Unknown]
  - Syncope [Unknown]
  - Neutropenia [Unknown]
  - No therapeutic response [Unknown]
